FAERS Safety Report 5719638-4 (Version None)
Quarter: 2008Q2

REPORT INFORMATION
  Report Type: 
  Country: None (occurrence: None)
  Receive Date: 20080428
  Receipt Date: 20080422
  Transmission Date: 20081010
  Serious: Yes (Life-Threatening, Other)
  Sender: FDA-Public Use
  Company Number: AU-AVENTIS-200812948GDDC

PATIENT
  Age: 75 Year
  Sex: Male

DRUGS (5)
  1. ARAVA [Suspect]
     Indication: RHEUMATOID ARTHRITIS
     Route: 048
     Dates: start: 19970123
  2. METHOTREXATE [Concomitant]
     Dosage: DOSE: UNK
  3. GLUCOSAMINE [Concomitant]
     Dosage: DOSE: UNK
  4. FISH OIL [Concomitant]
     Dosage: DOSE: UNK
  5. PARACETAMOL [Concomitant]
     Dosage: DOSE: UNK

REACTIONS (1)
  - SKIN CANCER [None]
